FAERS Safety Report 14205187 (Version 1)
Quarter: 2017Q4

REPORT INFORMATION
  Report Type: Spontaneous
  Country: DE (occurrence: DE)
  Receive Date: 20171120
  Receipt Date: 20171120
  Transmission Date: 20180321
  Serious: Yes (Other)
  Sender: FDA-Public Use
  Company Number: DE-MYLANLABS-2017M1072679

PATIENT
  Age: 32 Year
  Sex: Male

DRUGS (3)
  1. TRIMIPRAMIN [Suspect]
     Active Substance: TRIMIPRAMINE MALEATE
     Dosage: 75 MG, UNK
     Route: 048
     Dates: start: 20170905
  2. ESCITALOPRAM [Suspect]
     Active Substance: ESCITALOPRAM OXALATE
     Indication: PRODUCT USED FOR UNKNOWN INDICATION
     Route: 048
     Dates: start: 20170902, end: 20170907
  3. TRIMIPRAMIN [Suspect]
     Active Substance: TRIMIPRAMINE MALEATE
     Indication: PRODUCT USED FOR UNKNOWN INDICATION
     Route: 048
     Dates: start: 20170831, end: 20170904

REACTIONS (4)
  - Muscle twitching [Recovered/Resolved]
  - Dyskinesia [Recovered/Resolved]
  - Extrapyramidal disorder [Recovered/Resolved]
  - Restlessness [Recovered/Resolved]

NARRATIVE: CASE EVENT DATE: 20170903
